FAERS Safety Report 18326494 (Version 2)
Quarter: 2020Q4

REPORT INFORMATION
  Report Type: Spontaneous
  Country: CZ (occurrence: CZ)
  Receive Date: 20200929
  Receipt Date: 20201026
  Transmission Date: 20210113
  Serious: Yes (Hospitalization, Other)
  Sender: FDA-Public Use
  Company Number: CZ-JNJFOC-20200933463

PATIENT
  Age: 15 Year
  Sex: Male
  Weight: 67.5 kg

DRUGS (3)
  1. SILDENAFIL. [Suspect]
     Active Substance: SILDENAFIL
     Indication: PULMONARY ARTERIAL HYPERTENSION
     Dosage: UNK
     Route: 065
  2. TREPROSTINIL. [Suspect]
     Active Substance: TREPROSTINIL
     Indication: CARDIAC FAILURE CONGESTIVE
     Dosage: UNK
     Route: 058
  3. BOSENTAN. [Suspect]
     Active Substance: BOSENTAN
     Indication: PULMONARY ARTERIAL HYPERTENSION
     Dosage: UNK
     Route: 048

REACTIONS (11)
  - Thrombocytopenia [Unknown]
  - Cardiac disorder [Unknown]
  - Nausea [Unknown]
  - Fluid retention [Unknown]
  - Headache [Unknown]
  - Tremor [Unknown]
  - Somnolence [Unknown]
  - Brain abscess [Recovering/Resolving]
  - Pulmonary oedema [Unknown]
  - Vomiting [Unknown]
  - Off label use [Unknown]
